FAERS Safety Report 13687885 (Version 1)
Quarter: 2017Q2

REPORT INFORMATION
  Report Type: Report from Study
  Country: None (occurrence: US)
  Receive Date: 20170626
  Receipt Date: 20170626
  Transmission Date: 20170830
  Serious: Yes (Other)
  Sender: FDA-Public Use
  Company Number: US-ABBVIE-17K-163-2014661-00

PATIENT
  Sex: Female

DRUGS (2)
  1. HUMIRA [Suspect]
     Active Substance: ADALIMUMAB
     Route: 058
  2. HUMIRA [Suspect]
     Active Substance: ADALIMUMAB
     Indication: PSORIASIS
     Route: 058

REACTIONS (7)
  - Laboratory test abnormal [Unknown]
  - Psoriasis [Unknown]
  - Nasal septum deviation [Recovered/Resolved]
  - Psoriatic arthropathy [Unknown]
  - Blepharitis [Unknown]
  - Fatigue [Recovered/Resolved]
  - Gastric disorder [Unknown]
